FAERS Safety Report 10348411 (Version 2)
Quarter: 2014Q3

REPORT INFORMATION
  Report Type: Report from Study
  Country: US (occurrence: US)
  Receive Date: 20140729
  Receipt Date: 20140729
  Transmission Date: 20150326
  Serious: Yes (Hospitalization, Other)
  Sender: FDA-Public Use
  Company Number: US-ABBVIE-13P-163-1052343-00

PATIENT
  Age: 37 Year
  Sex: Female

DRUGS (11)
  1. HUMIRA [Suspect]
     Active Substance: ADALIMUMAB
     Dates: start: 201304, end: 201305
  2. PHENERGAN [Concomitant]
     Active Substance: PROMETHAZINE HYDROCHLORIDE
     Indication: NAUSEA
     Dosage: PRN
  3. HUMIRA [Suspect]
     Active Substance: ADALIMUMAB
     Dates: start: 2012
  4. REGLAN [Concomitant]
     Active Substance: METOCLOPRAMIDE HYDROCHLORIDE
     Indication: PRODUCT USED FOR UNKNOWN INDICATION
  5. HUMIRA [Suspect]
     Active Substance: ADALIMUMAB
     Indication: CROHN^S DISEASE
     Dates: start: 2006
  6. HUMIRA [Suspect]
     Active Substance: ADALIMUMAB
     Dates: start: 201306
  7. MORPHINE [Suspect]
     Active Substance: MORPHINE
     Indication: PRODUCT USED FOR UNKNOWN INDICATION
  8. VITAMIN B12 [Concomitant]
     Active Substance: CYANOCOBALAMIN
     Indication: PRODUCT USED FOR UNKNOWN INDICATION
  9. INAPSINE [Suspect]
     Active Substance: DROPERIDOL
     Indication: PRODUCT USED FOR UNKNOWN INDICATION
  10. HYDROCODONE [Concomitant]
     Active Substance: HYDROCODONE
     Indication: PAIN
     Dosage: 10/325 1 TAB 4 TIMES DAILY AS NEEDED
  11. PREVACID [Concomitant]
     Active Substance: LANSOPRAZOLE
     Indication: GASTROOESOPHAGEAL REFLUX DISEASE

REACTIONS (46)
  - Pancreatitis [Not Recovered/Not Resolved]
  - Crohn^s disease [Unknown]
  - Defaecation urgency [Unknown]
  - Crohn^s disease [Unknown]
  - Renal function test abnormal [Unknown]
  - Vitamin B complex deficiency [Unknown]
  - Muscle contracture [Recovered/Resolved]
  - Allergic oedema [Recovered/Resolved]
  - Feeling jittery [Unknown]
  - Blood magnesium decreased [Unknown]
  - Diarrhoea [Unknown]
  - Abdominal pain [Unknown]
  - Thyroid function test abnormal [Unknown]
  - Crohn^s disease [Unknown]
  - Pyrexia [Unknown]
  - Bone loss [Unknown]
  - Bladder spasm [Unknown]
  - Pelvic floor muscle weakness [Unknown]
  - Hepatic enzyme abnormal [Unknown]
  - Colitis [Unknown]
  - Incontinence [Unknown]
  - Gastrointestinal infection [Recovering/Resolving]
  - Palpitations [Recovered/Resolved]
  - Arthralgia [Unknown]
  - Drug ineffective [Not Recovered/Not Resolved]
  - Drug hypersensitivity [Unknown]
  - Influenza [Unknown]
  - Rheumatoid arthritis [Unknown]
  - Blood potassium decreased [Unknown]
  - Gastrointestinal pain [Unknown]
  - Crohn^s disease [Unknown]
  - Pain [Unknown]
  - Anal stenosis [Unknown]
  - Anxiety [Unknown]
  - Micturition urgency [Unknown]
  - Intestinal fistula [Recovering/Resolving]
  - Pruritus allergic [Unknown]
  - Insomnia [Unknown]
  - Menstrual disorder [Unknown]
  - Vitamin D deficiency [Unknown]
  - Migraine [Not Recovered/Not Resolved]
  - Drug hypersensitivity [Recovered/Resolved]
  - Vomiting [Unknown]
  - Bone disorder [Unknown]
  - Crohn^s disease [Unknown]
  - Small intestinal stenosis [Unknown]

NARRATIVE: CASE EVENT DATE: 2008
